FAERS Safety Report 11427787 (Version 2)
Quarter: 2015Q3

REPORT INFORMATION
  Report Type: Report from Study
  Country: GB (occurrence: GB)
  Receive Date: 20150828
  Receipt Date: 20150908
  Transmission Date: 20151125
  Serious: Yes (Hospitalization)
  Sender: FDA-Public Use
  Company Number: GB-BEH-2015053290

PATIENT
  Age: 37 Year
  Sex: Female

DRUGS (12)
  1. FERROUS FUMARATE [Concomitant]
     Active Substance: FERROUS FUMARATE
     Route: 048
     Dates: start: 20150804
  2. SYNTOCINON [Concomitant]
     Active Substance: OXYTOCIN
     Indication: POSTPARTUM HAEMORRHAGE
  3. HYDRALAZINE [Concomitant]
     Active Substance: HYDRALAZINE HYDROCHLORIDE
     Indication: HYPERTENSION
     Dosage: FOUR DOSES OF 5 MG; THEN MAINTENANCE INFUSION
     Route: 042
  4. RIASTAP [Suspect]
     Active Substance: FIBRINOGEN HUMAN
     Indication: POSTPARTUM HAEMORRHAGE
  5. CO-AMOXICLAV [Concomitant]
     Active Substance: AMOXICILLIN\CLAVULANIC ACID
     Dosage: STOPPED AS PLANNED
     Route: 048
     Dates: start: 20150803, end: 20150809
  6. IBUPROFEN. [Concomitant]
     Active Substance: IBUPROFEN
     Route: 048
     Dates: start: 20150805
  7. MISOPROSTOL. [Concomitant]
     Active Substance: MISOPROSTOL
     Indication: POSTPARTUM HAEMORRHAGE
     Route: 054
  8. NEBIVOLOL. [Concomitant]
     Active Substance: NEBIVOLOL
     Dosage: UNTIL 33 WEEKS OF PREGNANCY
  9. ENOXAPARIN [Concomitant]
     Active Substance: ENOXAPARIN
     Dosage: PATIENT REFUSED FURTHER DOSES
     Route: 058
     Dates: start: 20150804, end: 20150808
  10. LABETALOL [Concomitant]
     Active Substance: LABETALOL\LABETALOL HYDROCHLORIDE
     Dosage: TREATMENT INCREASED
     Route: 048
     Dates: start: 20150617
  11. TRANEXAMIC ACID. [Concomitant]
     Active Substance: TRANEXAMIC ACID
     Indication: POSTPARTUM HAEMORRHAGE
     Route: 042
  12. HAEMOBATE [Concomitant]
     Indication: POSTPARTUM HAEMORRHAGE
     Dosage: 2X250 MCG
     Route: 030

REACTIONS (2)
  - Pre-eclampsia [Recovered/Resolved]
  - Blood pressure increased [Recovered/Resolved]

NARRATIVE: CASE EVENT DATE: 20150807
